FAERS Safety Report 20683597 (Version 1)
Quarter: 2022Q2

REPORT INFORMATION
  Report Type: Spontaneous
  Country: US (occurrence: US)
  Receive Date: 20220407
  Receipt Date: 20220407
  Transmission Date: 20220721
  Serious: Yes (Hospitalization)
  Sender: FDA-Public Use
  Company Number: US-TEVA-2022-US-2023698

PATIENT
  Age: 22 Year
  Sex: Male

DRUGS (2)
  1. RISPERIDONE [Suspect]
     Active Substance: RISPERIDONE
     Indication: Schizophrenia
     Dosage: TITRATION TO 5MG OVER 4 DAYS
     Route: 065
  2. ARIPIPRAZOLE [Suspect]
     Active Substance: ARIPIPRAZOLE
     Indication: Schizophrenia
     Dosage: UNKNOWN INITIAL DOSE THAT WAS INCREASED TO 20MG
     Route: 065

REACTIONS (4)
  - Psychotic disorder [Recovering/Resolving]
  - Psychotic disorder [Unknown]
  - Rebound effect [Unknown]
  - Drug ineffective [Unknown]
